FAERS Safety Report 19877493 (Version 8)
Quarter: 2022Q1

REPORT INFORMATION
  Report Type: Report from Study
  Country: IT (occurrence: IT)
  Receive Date: 20210923
  Receipt Date: 20220216
  Transmission Date: 20220423
  Serious: Yes (Hospitalization)
  Sender: FDA-Public Use
  Company Number: NVSC2021IT211673

PATIENT
  Age: 30 Year
  Sex: Female
  Weight: 62 kg

DRUGS (7)
  1. CRIZANLIZUMAB [Suspect]
     Active Substance: CRIZANLIZUMAB
     Indication: Sickle cell disease
     Dosage: 5 MG/KG
     Route: 042
     Dates: start: 20210628
  2. FOLINA [Concomitant]
     Indication: General physical condition
     Dosage: UNK
     Route: 065
     Dates: start: 2010
  3. LOSARTAN [Concomitant]
     Active Substance: LOSARTAN
     Indication: Proteinuria
     Dosage: UNK
     Route: 065
     Dates: start: 202010
  4. ACETAMINOPHEN [Concomitant]
     Active Substance: ACETAMINOPHEN
     Indication: Sickle cell disease
     Dosage: UNK
     Route: 065
     Dates: start: 2010
  5. IBUPROFEN [Concomitant]
     Active Substance: IBUPROFEN
     Indication: Sickle cell disease
     Dosage: UNK
     Route: 065
     Dates: start: 202010
  6. TRAMADOL HYDROCHLORIDE [Concomitant]
     Active Substance: TRAMADOL HYDROCHLORIDE
     Indication: Sickle cell disease
     Dosage: UNK
     Route: 065
     Dates: start: 2011
  7. MORPHINE [Concomitant]
     Active Substance: MORPHINE
     Indication: Acute chest syndrome
     Dosage: UNK
     Route: 065
     Dates: start: 20210909, end: 20210909

REACTIONS (1)
  - Pulmonary embolism [Recovered/Resolved with Sequelae]

NARRATIVE: CASE EVENT DATE: 20210909
